FAERS Safety Report 11291726 (Version 1)
Quarter: 2015Q3

REPORT INFORMATION
  Report Type: Spontaneous
  Country: JP (occurrence: JP)
  Receive Date: 20150722
  Receipt Date: 20150722
  Transmission Date: 20151125
  Serious: Yes (Hospitalization)
  Sender: FDA-Public Use
  Company Number: JP-PFIZER INC-2015241294

PATIENT
  Age: 63 Year
  Sex: Female
  Weight: 43 kg

DRUGS (31)
  1. CAMPTO [Suspect]
     Active Substance: IRINOTECAN
     Dosage: UNK
     Dates: start: 20141106, end: 20141106
  2. LEVOLEUCOVORIN CALCIUM [Suspect]
     Active Substance: LEVOLEUCOVORIN CALCIUM
     Dosage: 250 MG (184.2 MG/M2), CYCLIC
     Route: 041
     Dates: start: 20141225, end: 20141225
  3. ELPLAT [Suspect]
     Active Substance: OXALIPLATIN
     Dosage: 88 MG (64.8 MG/M2), CYCLIC
     Route: 041
     Dates: start: 20140925, end: 20140925
  4. CAMPTO [Suspect]
     Active Substance: IRINOTECAN
     Dosage: 128 MG (94.3 MG/M2), CYCLIC
     Route: 041
     Dates: start: 20150115, end: 20150115
  5. LEVOLEUCOVORIN CALCIUM [Suspect]
     Active Substance: LEVOLEUCOVORIN CALCIUM
     Dosage: 250 MG (184.2 MG/M2), CYCLIC
     Route: 041
     Dates: start: 20141203, end: 20141203
  6. ELPLAT [Suspect]
     Active Substance: OXALIPLATIN
     Indication: PANCREATIC CARCINOMA
     Dosage: 115 MG (84.7 MG/M2), CYCLIC
     Route: 041
     Dates: start: 20140821, end: 20140821
  7. ELPLAT [Suspect]
     Active Substance: OXALIPLATIN
     Dosage: 88 MG (64.8 MG/M2), CYCLIC
     Route: 041
     Dates: start: 20141106, end: 20141106
  8. 5-FU [Concomitant]
     Active Substance: FLUOROURACIL
     Dosage: 3330 MG (2453.9 MG/M2) DAYS 1-2 AS CONTINUOUS INFUSION, CYCLIC
     Route: 041
     Dates: start: 20140821, end: 20150205
  9. CAMPTO [Suspect]
     Active Substance: IRINOTECAN
     Dosage: UNK
     Dates: start: 20150205, end: 20150205
  10. LEVOLEUCOVORIN CALCIUM [Suspect]
     Active Substance: LEVOLEUCOVORIN CALCIUM
     Dosage: UNK
     Dates: start: 20141016, end: 20141016
  11. ELPLAT [Suspect]
     Active Substance: OXALIPLATIN
     Dosage: UNK
     Dates: start: 20141203, end: 20141203
  12. LEVOLEUCOVORIN CALCIUM [Suspect]
     Active Substance: LEVOLEUCOVORIN CALCIUM
     Indication: PANCREATIC CARCINOMA
     Dosage: 270 MG (199 MG/M2), CYCLIC
     Route: 041
     Dates: start: 20140821, end: 20140821
  13. LEVOLEUCOVORIN CALCIUM [Suspect]
     Active Substance: LEVOLEUCOVORIN CALCIUM
     Dosage: UNK
     Dates: start: 20150115, end: 20150115
  14. CAMPTO [Suspect]
     Active Substance: IRINOTECAN
     Indication: PANCREATIC CARCINOMA
     Dosage: 200 MG (147.4 MG/M2), CYCLIC
     Route: 041
     Dates: start: 20140821, end: 20140821
  15. CAMPTO [Suspect]
     Active Substance: IRINOTECAN
     Dosage: 128 MG (94.3 MG/M2), CYCLIC
     Route: 041
     Dates: start: 20140925, end: 20140925
  16. CAMPTO [Suspect]
     Active Substance: IRINOTECAN
     Dosage: 128 MG (94.3 MG/M2), CYCLIC
     Route: 041
     Dates: start: 20141225, end: 20141225
  17. CAMPTO [Suspect]
     Active Substance: IRINOTECAN
     Dosage: UNK
  18. LEVOLEUCOVORIN CALCIUM [Suspect]
     Active Substance: LEVOLEUCOVORIN CALCIUM
     Dosage: 270 MG (199 MG/M2), CYCLIC
     Route: 041
     Dates: start: 20140904, end: 20140904
  19. LEVOLEUCOVORIN CALCIUM [Suspect]
     Active Substance: LEVOLEUCOVORIN CALCIUM
     Dosage: 250 MG (184.2 MG/M2), CYCLIC
     Route: 041
     Dates: start: 20150205, end: 20150205
  20. ELPLAT [Suspect]
     Active Substance: OXALIPLATIN
     Dosage: 88 MG (64.8 MG/M2), CYCLIC
     Route: 041
     Dates: start: 20150115, end: 20150115
  21. CAMPTO [Suspect]
     Active Substance: IRINOTECAN
     Dosage: 160 MG (117.9 MG/M2), CYCLIC
     Route: 041
     Dates: start: 20140904, end: 20140904
  22. CAMPTO [Suspect]
     Active Substance: IRINOTECAN
     Dosage: 128 MG (94.3 MG/M2), CYCLIC
     Route: 041
     Dates: start: 20141016, end: 20141016
  23. CAMPTO [Suspect]
     Active Substance: IRINOTECAN
     Dosage: 128 MG (94.3 MG/M2), CYCLIC
     Route: 041
     Dates: start: 20141203, end: 20141203
  24. LEVOLEUCOVORIN CALCIUM [Suspect]
     Active Substance: LEVOLEUCOVORIN CALCIUM
     Dosage: 250 MG (184.2 MG/M2), CYCLIC
     Route: 041
     Dates: start: 20141106, end: 20141106
  25. ELPLAT [Suspect]
     Active Substance: OXALIPLATIN
     Dosage: 88 MG (64.8 MG/M2), CYCLIC
     Route: 041
     Dates: start: 20141225, end: 20141225
  26. LEVOLEUCOVORIN CALCIUM [Suspect]
     Active Substance: LEVOLEUCOVORIN CALCIUM
     Dosage: 250 MG (184.2 MG/M2), CYCLIC
     Route: 041
     Dates: start: 20140925, end: 20140925
  27. LEVOLEUCOVORIN CALCIUM [Suspect]
     Active Substance: LEVOLEUCOVORIN CALCIUM
     Dosage: 250 MG (184.2 MG/M2), CYCLIC
     Route: 041
  28. ELPLAT [Suspect]
     Active Substance: OXALIPLATIN
     Dosage: 88 MG (64.8 MG/M2), CYCLIC
     Route: 041
     Dates: start: 20140904, end: 20140904
  29. ELPLAT [Suspect]
     Active Substance: OXALIPLATIN
     Dosage: 88 MG (64.8 MG/M2), CYCLIC
     Route: 041
     Dates: start: 20141016, end: 20141016
  30. ELPLAT [Suspect]
     Active Substance: OXALIPLATIN
     Dosage: 88 MG (64.8 MG/M2), CYCLIC
     Route: 041
     Dates: start: 20150205, end: 20150205
  31. ELPLAT [Suspect]
     Active Substance: OXALIPLATIN
     Dosage: UNK

REACTIONS (10)
  - Nausea [Unknown]
  - Fatigue [Unknown]
  - Duodenal ulcer [Unknown]
  - Pyrexia [Unknown]
  - Vomiting [Unknown]
  - Hypokalaemia [Unknown]
  - Peripheral sensory neuropathy [Unknown]
  - Haemoglobin decreased [Unknown]
  - Decreased appetite [Unknown]
  - Diarrhoea [Unknown]
